FAERS Safety Report 7933528-8 (Version None)
Quarter: 2011Q4

REPORT INFORMATION
  Report Type: 
  Country: None (occurrence: None)
  Receive Date: 20111122
  Receipt Date: 20111118
  Transmission Date: 20120403
  Serious: Yes (Hospitalization, Other)
  Sender: FDA-Public Use
  Company Number: NL-ABBOTT-11P-114-0716578-00

PATIENT
  Sex: Male
  Weight: 80 kg

DRUGS (5)
  1. HUMIRA [Suspect]
     Indication: PSORIATIC ARTHROPATHY
     Route: 058
     Dates: start: 20110120, end: 20110917
  2. OMEPRAZOLE [Concomitant]
     Indication: PRODUCT USED FOR UNKNOWN INDICATION
     Route: 048
  3. FOLIC ACID [Concomitant]
     Indication: VITAMIN SUPPLEMENTATION
     Route: 048
  4. METHOTREXATE [Concomitant]
     Indication: PSORIATIC ARTHROPATHY
     Route: 048
  5. HUMIRA [Suspect]
     Dates: start: 20111018

REACTIONS (8)
  - DYSPHAGIA [None]
  - HEPATIC ENZYME INCREASED [None]
  - HAEMOPTYSIS [None]
  - NEOPLASM SKIN [None]
  - OESOPHAGEAL DISORDER [None]
  - PRODUCTIVE COUGH [None]
  - FOREIGN BODY [None]
  - EYE DISCHARGE [None]
